FAERS Safety Report 21374695 (Version 1)
Quarter: 2022Q3

REPORT INFORMATION
  Report Type: Spontaneous
  Country: US (occurrence: US)
  Receive Date: 20220926
  Receipt Date: 20220926
  Transmission Date: 20221026
  Serious: No
  Sender: FDA-Public Use
  Company Number: US-ALLERGAN-2136229US

PATIENT
  Sex: Female

DRUGS (1)
  1. LEXAPRO [Suspect]
     Active Substance: ESCITALOPRAM OXALATE
     Indication: Product used for unknown indication
     Dosage: UNK

REACTIONS (6)
  - Malaise [Unknown]
  - Poor quality product administered [Unknown]
  - Product dispensing error [Unknown]
  - Product size issue [Unknown]
  - Drug ineffective [Unknown]
  - Anxiety [Unknown]
